FAERS Safety Report 9442288 (Version 1)
Quarter: 2013Q3

REPORT INFORMATION
  Report Type: Spontaneous
  Country: US (occurrence: None)
  Receive Date: 20130805
  Receipt Date: 20130805
  Transmission Date: 20140515
  Serious: Yes (Other)
  Sender: FDA-Public Use
  Company Number: None

PATIENT
  Age: 57 None
  Sex: Male

DRUGS (11)
  1. ZOLPIDEM TARTRATE [Suspect]
     Indication: INSOMNIA
     Dosage: 30 PILLS AT BEDTIME BY MOUTH
     Route: 048
     Dates: start: 20120920, end: 20130703
  2. TRIAMTERENE [Concomitant]
  3. OMEPRAZOLE [Concomitant]
  4. RISPERIDONE [Concomitant]
  5. PRAVASTATIN [Concomitant]
  6. VIIBRYD [Concomitant]
  7. LISINOPRIL [Concomitant]
  8. CENTRUM SILVER 50+ [Concomitant]
  9. VITAMIN D3 [Concomitant]
  10. FISH OIL [Concomitant]
  11. BAYER [Concomitant]

REACTIONS (8)
  - Hypoaesthesia [None]
  - Depression [None]
  - Insomnia [None]
  - Dizziness [None]
  - Flushing [None]
  - Swollen tongue [None]
  - Anxiety [None]
  - Pharyngeal oedema [None]
